FAERS Safety Report 4786693-8 (Version None)
Quarter: 2005Q4

REPORT INFORMATION
  Report Type: 
  Country: None (occurrence: None)
  Receive Date: 20051004
  Receipt Date: 20050920
  Transmission Date: 20060501
  Serious: Yes (Other)
  Sender: FDA-Public Use
  Company Number: US-BOEHRINGER INGELHEIM PHARMACEUTICALS, INC.-2005-DE-03860GD

PATIENT
  Age: 44 Year
  Sex: Male
  Weight: 108 kg

DRUGS (4)
  1. MELOXICAM [Suspect]
     Indication: OSTEOARTHRITIS
  2. BISACODYL [Suspect]
     Indication: PREOPERATIVE CARE
     Route: 048
     Dates: start: 20031201
  3. VISICOL [Suspect]
     Indication: PREOPERATIVE CARE
     Route: 048
     Dates: start: 20031201
  4. RAMIPRIL [Suspect]
     Dates: start: 20020101

REACTIONS (6)
  - COLITIS [None]
  - DEHYDRATION [None]
  - HAEMATOCHEZIA [None]
  - NEPHROCALCINOSIS [None]
  - RENAL FAILURE ACUTE [None]
  - RENAL FAILURE CHRONIC [None]
